FAERS Safety Report 24423640 (Version 1)
Quarter: 2024Q4

REPORT INFORMATION
  Report Type: Spontaneous
  Country: US (occurrence: US)
  Receive Date: 20241010
  Receipt Date: 20241010
  Transmission Date: 20250114
  Serious: No
  Sender: INSUD PHARMA
  Company Number: US-INSUD PHARMA-2409US07583

PATIENT

DRUGS (1)
  1. SLYND [Suspect]
     Active Substance: DROSPIRENONE
     Indication: Product used for unknown indication
     Dosage: UNKNOWN
     Route: 048

REACTIONS (3)
  - Diarrhoea [Unknown]
  - Amenorrhoea [Unknown]
  - Product dose omission issue [Unknown]
